FAERS Safety Report 12675549 (Version 4)
Quarter: 2016Q4

REPORT INFORMATION
  Report Type: Spontaneous
  Country: AT (occurrence: AT)
  Receive Date: 20160823
  Receipt Date: 20161013
  Transmission Date: 20170207
  Serious: Yes (Life-Threatening, Hospitalization)
  Sender: FDA-Public Use
  Company Number: AT-BEH-2016072895

PATIENT
  Age: 54 Year
  Sex: Male
  Weight: 80 kg

DRUGS (4)
  1. AMPICILLIN SODIUM W/SULBACTAM SODIUM [Concomitant]
     Active Substance: AMPICILLIN SODIUM\SULBACTAM SODIUM
     Route: 065
  2. OMEPRAZOLE. [Concomitant]
     Active Substance: OMEPRAZOLE
     Route: 065
  3. PRIVIGEN [Suspect]
     Active Substance: HUMAN IMMUNOGLOBULIN G
     Indication: GUILLAIN-BARRE SYNDROME
     Dosage: 30 G, UNK
     Route: 042
     Dates: start: 20160730, end: 20160803
  4. DALTEPARIN [Concomitant]
     Active Substance: DALTEPARIN
     Route: 065

REACTIONS (3)
  - Intensive care [Unknown]
  - Mesenteric artery thrombosis [Recovering/Resolving]
  - Mesenteric vascular occlusion [Recovering/Resolving]

NARRATIVE: CASE EVENT DATE: 20160805
